FAERS Safety Report 20352730 (Version 1)
Quarter: 2022Q1

REPORT INFORMATION
  Report Type: Spontaneous
  Country: US (occurrence: US)
  Receive Date: 20220119
  Receipt Date: 20220119
  Transmission Date: 20220423
  Serious: Yes (Other)
  Sender: FDA-Public Use
  Company Number: US-JAZZ-2022-US-000064

PATIENT
  Age: 39 Year
  Sex: Female
  Weight: 99.773 kg

DRUGS (1)
  1. SUNOSI [Suspect]
     Active Substance: SOLRIAMFETOL
     Indication: Narcolepsy
     Dosage: 150 MILLIGRAM, QD
     Route: 048

REACTIONS (9)
  - Encephalomalacia [Unknown]
  - Pituitary cyst [Unknown]
  - White matter lesion [Unknown]
  - Mucosal hypertrophy [Unknown]
  - Restless legs syndrome [Unknown]
  - Parasomnia [Unknown]
  - Dry mouth [Unknown]
  - Blood pressure increased [Not Recovered/Not Resolved]
  - Therapeutic response shortened [Unknown]

NARRATIVE: CASE EVENT DATE: 20211215
